FAERS Safety Report 5728473-2 (Version None)
Quarter: 2008Q2

REPORT INFORMATION
  Report Type: 
  Country: None (occurrence: None)
  Receive Date: 20080502
  Receipt Date: 20080502
  Transmission Date: 20081010
  Serious: No
  Sender: FDA-Public Use
  Company Number: None

PATIENT
  Age: 46 Year
  Sex: Female

DRUGS (3)
  1. MACRODANTIN [Suspect]
     Dates: start: 20000531, end: 20050201
  2. GLUCOSAMINE [Concomitant]
  3. ASCORBIC ACID [Concomitant]

REACTIONS (9)
  - ACUTE HEPATIC FAILURE [None]
  - BRAIN OEDEMA [None]
  - HEPATOMEGALY [None]
  - HEPATOTOXICITY [None]
  - LIVER INJURY [None]
  - MENTAL STATUS CHANGES [None]
  - PLEURAL EFFUSION [None]
  - SOMNOLENCE [None]
  - URINARY TRACT INFECTION [None]
